FAERS Safety Report 9822242 (Version 2)
Quarter: 2014Q1

REPORT INFORMATION
  Report Type: Spontaneous
  Country: US (occurrence: US)
  Receive Date: 20140116
  Receipt Date: 20140116
  Transmission Date: 20141002
  Serious: Yes (Other)
  Sender: FDA-Public Use
  Company Number: US-BEH-2012032777

PATIENT
  Age: 23 Year
  Sex: Female

DRUGS (3)
  1. BERINERT [Suspect]
     Indication: HEREDITARY ANGIOEDEMA
     Dosage: 500 UNIT VIAL (WITH 10 ML DILUENT);INFUSION RATE NO FASTER THAN 4 ML/MINUTE
     Route: 042
     Dates: start: 20120702, end: 20120702
  2. BERINERT [Suspect]
     Route: 042
     Dates: start: 20140103, end: 20140103
  3. BERINERT [Suspect]
     Route: 042
     Dates: start: 20140103, end: 20140103

REACTIONS (3)
  - Drug ineffective [Recovered/Resolved]
  - Drug ineffective [Unknown]
  - Insomnia [Unknown]
